FAERS Safety Report 7807792-X (Version None)
Quarter: 2011Q4

REPORT INFORMATION
  Report Type: 
  Country: None (occurrence: None)
  Receive Date: 20111011
  Receipt Date: 20111006
  Transmission Date: 20120403
  Serious: Yes (Death, Life-Threatening, Hospitalization)
  Sender: FDA-Public Use
  Company Number: GB-TEVA-303891ISR

PATIENT
  Age: 64 Year
  Sex: Male

DRUGS (1)
  1. CLARITHROMYCIN [Suspect]
     Indication: PRODUCT USED FOR UNKNOWN INDICATION
     Dosage: HAD TAKEN ONE TABLET  (UNKNOWN STRENGTH) IN THE EARLY AFTERNOON AND ONE IN THE EVENING
     Route: 065

REACTIONS (1)
  - ANAPHYLACTIC REACTION [None]
